FAERS Safety Report 5746417-4 (Version None)
Quarter: 2008Q2

REPORT INFORMATION
  Report Type: 
  Country: None (occurrence: None)
  Receive Date: 20080522
  Receipt Date: 20080520
  Transmission Date: 20081010
  Serious: Yes (Other)
  Sender: FDA-Public Use
  Company Number: A0723645A

PATIENT
  Age: 15 Year
  Sex: Male
  Weight: 63.6 kg

DRUGS (2)
  1. ADVAIR DISKUS 100/50 [Suspect]
     Indication: ASTHMA
     Dosage: 1PUFF TWICE PER DAY
     Route: 055
     Dates: start: 20070101, end: 20080401
  2. RHINOCORT [Concomitant]

REACTIONS (5)
  - CONVULSION [None]
  - EXPIRED DRUG ADMINISTERED [None]
  - LOSS OF CONSCIOUSNESS [None]
  - POSTICTAL STATE [None]
  - SOMNOLENCE [None]
